FAERS Safety Report 10571083 (Version 2)
Quarter: 2015Q1

REPORT INFORMATION
  Report Type: Spontaneous
  Country: FR (occurrence: FR)
  Receive Date: 20141107
  Receipt Date: 20150213
  Transmission Date: 20150720
  Serious: Yes (Hospitalization, Other)
  Sender: FDA-Public Use
  Company Number: FR-GLAXOSMITHKLINE-FR2014GSK014193

PATIENT
  Age: 65 Year
  Sex: Female

DRUGS (11)
  1. ISOFLURANE. [Suspect]
     Active Substance: ISOFLURANE
     Indication: ANAESTHESIA
     Dosage: UNK
     Route: 055
     Dates: start: 19990930, end: 19991001
  2. ZOPHREN [Suspect]
     Active Substance: ONDANSETRON
     Indication: PRODUCT USED FOR UNKNOWN INDICATION
     Dosage: UNK
     Dates: start: 19990930, end: 19991001
  3. SUFENTANIL [Suspect]
     Active Substance: SUFENTANIL
     Indication: ANAESTHESIA
     Dosage: UNK
     Dates: start: 19990930, end: 19991001
  4. STILNOX [Suspect]
     Active Substance: ZOLPIDEM TARTRATE
     Indication: PREMEDICATION
     Dosage: UNK
     Route: 048
     Dates: start: 19990929, end: 19990929
  5. TRACRIUM [Suspect]
     Active Substance: ATRACURIUM BESYLATE
     Indication: ANAESTHESIA
     Dosage: UNK
     Dates: start: 19990930, end: 19991001
  6. PENTOTHAL [Suspect]
     Active Substance: THIOPENTAL SODIUM
     Indication: ANAESTHESIA
     Dosage: UNK
     Dates: start: 19990930, end: 19991001
  7. PRO DAFALGAN [Suspect]
     Active Substance: PROPACETAMOL HYDROCHLORIDE
     Indication: PRODUCT USED FOR UNKNOWN INDICATION
     Dosage: UNK
     Dates: start: 19990930, end: 19991001
  8. HYPNOVEL [Suspect]
     Active Substance: MIDAZOLAM\MIDAZOLAM HYDROCHLORIDE
     Indication: ANAESTHESIA
     Dosage: UNK
     Dates: start: 19990930, end: 19990930
  9. PROFENID [Suspect]
     Active Substance: KETOPROFEN
     Indication: INFLAMMATION
     Dosage: 50 MG, QID
     Dates: start: 19991001, end: 19991001
  10. AUGMENTIN [Suspect]
     Active Substance: AMOXICILLIN\CLAVULANATE POTASSIUM
     Indication: ANTIBIOTIC PROPHYLAXIS
     Dosage: UNK UNK, UNK
     Route: 042
     Dates: start: 19990930, end: 19991001
  11. DIVINA [Concomitant]

REACTIONS (1)
  - Acute kidney injury [Recovering/Resolving]

NARRATIVE: CASE EVENT DATE: 19990930
